FAERS Safety Report 19226811 (Version 1)
Quarter: 2021Q2

REPORT INFORMATION
  Report Type: Not Available
  Country: None (occurrence: None)
  Receive Date: 20210506
  Receipt Date: 20210506
  Transmission Date: 20210717
  Serious: No
  Sender: FDA-Public Use
  Company Number: US-AKORN-165385

PATIENT
  Age: 71 Year
  Sex: Female

DRUGS (1)
  1. THERATEARS LUBRICANT EYE [Suspect]
     Active Substance: CARBOXYMETHYLCELLULOSE SODIUM

REACTIONS (4)
  - Asthenopia [Recovered/Resolved]
  - Foreign body sensation in eyes [Recovered/Resolved]
  - Ocular discomfort [Recovered/Resolved]
  - Eye pruritus [Recovered/Resolved]
